FAERS Safety Report 16566686 (Version 1)
Quarter: 2019Q3

REPORT INFORMATION
  Report Type: Spontaneous
  Country: CN (occurrence: CN)
  Receive Date: 20190712
  Receipt Date: 20190712
  Transmission Date: 20191004
  Serious: Yes (Other)
  Sender: FDA-Public Use
  Company Number: CN-ROCHE-2324577

PATIENT
  Age: 38 Year
  Sex: Female

DRUGS (5)
  1. TRASTUZUMAB. [Suspect]
     Active Substance: TRASTUZUMAB
     Route: 065
     Dates: start: 20190409
  2. PERTUZUMAB. [Suspect]
     Active Substance: PERTUZUMAB
     Indication: BREAST CANCER
     Route: 065
     Dates: start: 20190318
  3. DOCETAXEL. [Suspect]
     Active Substance: DOCETAXEL
     Indication: BREAST CANCER
     Route: 065
     Dates: start: 20190409
  4. PERTUZUMAB. [Suspect]
     Active Substance: PERTUZUMAB
     Route: 065
     Dates: start: 20190409
  5. TRASTUZUMAB. [Suspect]
     Active Substance: TRASTUZUMAB
     Indication: BREAST CANCER
     Route: 065
     Dates: start: 20190318

REACTIONS (3)
  - Rash [Unknown]
  - Weight decreased [Unknown]
  - Bone marrow failure [Unknown]
